FAERS Safety Report 25428429 (Version 6)
Quarter: 2025Q3

REPORT INFORMATION
  Report Type: Spontaneous
  Country: US (occurrence: US)
  Receive Date: 20250612
  Receipt Date: 20250917
  Transmission Date: 20251021
  Serious: No
  Sender: SANOFI AVENTIS
  Company Number: US-SA-2025SA165984

PATIENT
  Age: 78 Year
  Sex: Male
  Weight: 65.76 kg

DRUGS (7)
  1. DUPIXENT [Suspect]
     Active Substance: DUPILUMAB
     Indication: Dermatitis atopic
     Route: 058
     Dates: start: 20250606, end: 20250606
  2. DUPIXENT [Suspect]
     Active Substance: DUPILUMAB
     Dosage: 300 MG, QOW
     Route: 058
     Dates: start: 20250620
  3. LOSARTAN POTASSIUM [Concomitant]
     Active Substance: LOSARTAN POTASSIUM
  4. PRAVASTATIN SODIUM [Concomitant]
     Active Substance: PRAVASTATIN SODIUM
  5. EZETIMIBE [Concomitant]
     Active Substance: EZETIMIBE
  6. AMLODIPINE BESYLATE [Concomitant]
     Active Substance: AMLODIPINE BESYLATE
  7. VITAMINS [Concomitant]
     Active Substance: VITAMINS

REACTIONS (10)
  - Hepatic steatosis [Unknown]
  - Intraocular pressure increased [Unknown]
  - Weight decreased [Unknown]
  - Blood glucose increased [Unknown]
  - Vasodilatation [Not Recovered/Not Resolved]
  - Pruritus [Not Recovered/Not Resolved]
  - Rash [Unknown]
  - Injection site pain [Not Recovered/Not Resolved]
  - Injection site erythema [Recovering/Resolving]
  - Injection site swelling [Recovering/Resolving]

NARRATIVE: CASE EVENT DATE: 20250101
